FAERS Safety Report 11026165 (Version 5)
Quarter: 2015Q4

REPORT INFORMATION
  Report Type: Report from Study
  Country: FR (occurrence: FR)
  Receive Date: 20150414
  Receipt Date: 20151009
  Transmission Date: 20160304
  Serious: Yes (Hospitalization, Other)
  Sender: FDA-Public Use
  Company Number: FR-EISAI MEDICAL RESEARCH-E7080-01398-CLI-FR

PATIENT
  Age: 68 Year
  Sex: Female
  Weight: 58.3 kg

DRUGS (22)
  1. LENVATINIB [Suspect]
     Active Substance: LENVATINIB
     Indication: THYROID CANCER
     Route: 048
     Dates: start: 20120918, end: 20120930
  2. LENVATINIB [Suspect]
     Active Substance: LENVATINIB
     Route: 048
     Dates: start: 20141111, end: 20150107
  3. LENVATINIB [Suspect]
     Active Substance: LENVATINIB
     Route: 048
     Dates: start: 20150202, end: 20150225
  4. DAFALGAN CODEINE [Concomitant]
     Active Substance: ACETAMINOPHEN\CODEINE PHOSPHATE
  5. VALSARTAN. [Concomitant]
     Active Substance: VALSARTAN
  6. SMECTA [Concomitant]
     Active Substance: MONTMORILLONITE
  7. LENVATINIB [Suspect]
     Active Substance: LENVATINIB
     Route: 048
     Dates: start: 20121113, end: 20130116
  8. IMODIUM [Concomitant]
     Active Substance: LOPERAMIDE HYDROCHLORIDE
  9. SPASFON [Concomitant]
     Active Substance: PHLOROGLUCINOL
  10. URALPHA [Concomitant]
  11. CALCIUM [Concomitant]
     Active Substance: CALCIUM
  12. CALCIT [Concomitant]
  13. ASPIRINE [Concomitant]
     Active Substance: ASPIRIN
  14. XALATAN [Concomitant]
     Active Substance: LATANOPROST
  15. KYTRIL [Concomitant]
     Active Substance: GRANISETRON HYDROCHLORIDE
  16. EXFORGE [Concomitant]
     Active Substance: AMLODIPINE BESYLATE\VALSARTAN
  17. LENVATINIB [Suspect]
     Active Substance: LENVATINIB
     Route: 048
     Dates: start: 20130205, end: 20141021
  18. FOSAVANCE [Concomitant]
     Active Substance: ALENDRONATE SODIUM\CHOLECALCIFEROL
  19. LEVOTHYROXINE. [Concomitant]
     Active Substance: LEVOTHYROXINE
  20. ATACAND [Concomitant]
     Active Substance: CANDESARTAN CILEXETIL
  21. LENVATINIB [Suspect]
     Active Substance: LENVATINIB
     Route: 048
     Dates: start: 20121015, end: 20121016
  22. DAFALGAN [Concomitant]
     Active Substance: ACETAMINOPHEN

REACTIONS (3)
  - Acute coronary syndrome [Recovered/Resolved]
  - Renal artery stenosis [Recovered/Resolved]
  - Hypomagnesaemia [Recovered/Resolved]

NARRATIVE: CASE EVENT DATE: 20131014
